FAERS Safety Report 5366573-X (Version None)
Quarter: 2007Q2

REPORT INFORMATION
  Report Type: 
  Country: None (occurrence: None)
  Receive Date: 20070622
  Receipt Date: 20070611
  Transmission Date: 20071010
  Serious: Yes (Death, Hospitalization)
  Sender: FDA-Public Use
  Company Number: US-PFIZER INC-2007044254

PATIENT
  Sex: Female

DRUGS (4)
  1. CELECOXIB [Suspect]
     Dosage: DAILY DOSE:100MG
     Route: 048
     Dates: start: 20070401, end: 20070507
  2. CYCLOPHOSPHAMIDE [Suspect]
     Indication: NEUROBLASTOMA
     Dates: start: 20070505, end: 20070509
  3. TOPOTECAN [Suspect]
     Indication: NEUROBLASTOMA
     Dates: start: 20070505, end: 20070509
  4. NIFURTIMOX [Suspect]
     Indication: NEUROBLASTOMA
     Dosage: DAILY DOSE:40MG/KG
     Route: 048
     Dates: start: 20070420, end: 20070512

REACTIONS (2)
  - NEUROBLASTOMA [None]
  - PULMONARY HAEMORRHAGE [None]
